FAERS Safety Report 6796293-6 (Version None)
Quarter: 2010Q2

REPORT INFORMATION
  Report Type: 
  Country: None (occurrence: None)
  Receive Date: 20100624
  Receipt Date: 20100624
  Transmission Date: 20101027
  Serious: Yes (Other)
  Sender: FDA-Public Use
  Company Number: None

PATIENT
  Age: 65 Year
  Sex: Female

DRUGS (1)
  1. SUCRALFATE [Suspect]
     Indication: IRRITABLE BOWEL SYNDROME
     Dosage: TAKE 1 TBLET FOUR TIMES DAILY
     Dates: start: 20080101

REACTIONS (5)
  - CONDITION AGGRAVATED [None]
  - GASTRIC DISORDER [None]
  - PRODUCT QUALITY ISSUE [None]
  - PRODUCT SOLUBILITY ABNORMAL [None]
  - TABLET ISSUE [None]
